FAERS Safety Report 11243693 (Version 1)
Quarter: 2015Q3

REPORT INFORMATION
  Report Type: Spontaneous
  Country: US (occurrence: None)
  Receive Date: 20150702
  Receipt Date: 20150702
  Transmission Date: 20151125
  Serious: No
  Sender: FDA-Public Use
  Company Number: None

PATIENT
  Age: 33 Year
  Sex: Female
  Weight: 114.31 kg

DRUGS (3)
  1. BELVIQ [Suspect]
     Active Substance: LORCASERIN HYDROCHLORIDE
     Indication: DECREASED APPETITE
     Route: 048
     Dates: start: 20150615, end: 20150627
  2. MULTIVITAMIN [Concomitant]
     Active Substance: VITAMINS
  3. AMLODEPENE [Concomitant]

REACTIONS (3)
  - Drug ineffective [None]
  - Headache [None]
  - Dizziness [None]

NARRATIVE: CASE EVENT DATE: 20150622
